FAERS Safety Report 7816036-4 (Version None)
Quarter: 2011Q4

REPORT INFORMATION
  Report Type: 
  Country: None (occurrence: None)
  Receive Date: 20111014
  Receipt Date: 20110922
  Transmission Date: 20120403
  Serious: Yes (Other)
  Sender: FDA-Public Use
  Company Number: US-ROCHE-1001006

PATIENT
  Sex: Female

DRUGS (2)
  1. RIBASPHERE [Suspect]
     Indication: HEPATITIS C
     Dosage: DIVIDED DOSES
     Dates: start: 20110919
  2. PEGASYS [Suspect]
     Indication: HEPATITIS C
     Dates: start: 20110919

REACTIONS (4)
  - DIZZINESS [None]
  - PRURITUS GENERALISED [None]
  - RASH [None]
  - MUSCULOSKELETAL PAIN [None]
